FAERS Safety Report 20766077 (Version 1)
Quarter: 2022Q2

REPORT INFORMATION
  Report Type: Spontaneous
  Country: US (occurrence: US)
  Receive Date: 20220428
  Receipt Date: 20220428
  Transmission Date: 20220720
  Serious: No
  Sender: FDA-Public Use
  Company Number: US-Vifor (International) Inc.-VIT-2022-02406

PATIENT
  Age: 14 Month
  Sex: Female

DRUGS (10)
  1. VELTASSA [Suspect]
     Active Substance: PATIROMER
     Indication: Hyperkalaemia
     Dosage: 8.4 GRAMS PACKET MIXED IN 80 ML OF WATER THEN THEY MEASURE ONLY 40 ML ONLY GIVE HER THAT AND REMAIND
     Route: 048
  2. VELTASSA [Suspect]
     Active Substance: PATIROMER
     Dosage: FOUR 8.4 GRAMS PACKET ADDED IN 1200 ML FEEDINGS AS AND DECANTING AGENT THAT WAS GIVEN VIA G-TUBE ONC
  3. SODIUM CHLORIDE [Concomitant]
     Active Substance: SODIUM CHLORIDE
  4. BICITRA [CITRIC ACID;SODIUM CITRATE] [Concomitant]
  5. SODIUM BICARBONATE [Concomitant]
     Active Substance: SODIUM BICARBONATE
  6. VITAMINS NOS [Concomitant]
     Active Substance: VITAMINS
  7. OMEPRAZOE [Concomitant]
  8. CALCIUM CARBONATE [Concomitant]
     Active Substance: CALCIUM CARBONATE
  9. BETHANECHOL [Concomitant]
     Active Substance: BETHANECHOL
  10. SODIUM PHOSPHATE [Concomitant]
     Active Substance: SODIUM PHOSPHATE

REACTIONS (3)
  - Wrong technique in product usage process [Unknown]
  - Off label use [Unknown]
  - No adverse event [Unknown]
